FAERS Safety Report 18791189 (Version 1)
Quarter: 2021Q1

REPORT INFORMATION
  Report Type: Spontaneous
  Country: DE (occurrence: DE)
  Receive Date: 20210126
  Receipt Date: 20210126
  Transmission Date: 20210419
  Serious: Yes (Life-Threatening, Hospitalization, Other)
  Sender: FDA-Public Use
  Company Number: DE-GILEAD-2021-0514183

PATIENT
  Sex: Male
  Weight: 90 kg

DRUGS (9)
  1. DEXAMETHASONE. [Concomitant]
     Active Substance: DEXAMETHASONE
     Dosage: 2 MG
     Dates: start: 20201103
  2. PRAVASTATIN. [Concomitant]
     Active Substance: PRAVASTATIN
     Indication: MULTIPLE ORGAN DYSFUNCTION SYNDROME
     Dosage: 20 MG
     Dates: end: 20201105
  3. VEKLURY [Suspect]
     Active Substance: REMDESIVIR
     Dosage: 100 MG, QD
     Route: 042
     Dates: start: 20201104, end: 20201105
  4. PANTOPRAZOLE [Concomitant]
     Active Substance: PANTOPRAZOLE
     Indication: MULTIPLE ORGAN DYSFUNCTION SYNDROME
     Dosage: 40 MG
     Dates: end: 20201105
  5. EDOXABAN [Concomitant]
     Active Substance: EDOXABAN TOSYLATE
     Indication: MULTIPLE ORGAN DYSFUNCTION SYNDROME
     Dosage: 60 MG
     Dates: end: 20201105
  6. METOPROLOL. [Concomitant]
     Active Substance: METOPROLOL
     Indication: MULTIPLE ORGAN DYSFUNCTION SYNDROME
     Dosage: 25,75 MG
     Dates: end: 20201105
  7. PIPERACILLIN AND TAZOBACTAM [Concomitant]
     Active Substance: PIPERACILLIN SODIUM\TAZOBACTAM SODIUM
     Dosage: 45 G
     Dates: start: 20201103
  8. CANDESARTAN. [Concomitant]
     Active Substance: CANDESARTAN
     Indication: MULTIPLE ORGAN DYSFUNCTION SYNDROME
     Dosage: 16 MG
     Dates: end: 20201105
  9. VEKLURY [Suspect]
     Active Substance: REMDESIVIR
     Indication: COVID-19
     Dosage: 200 MG, QD
     Route: 042
     Dates: start: 20201103, end: 20201103

REACTIONS (2)
  - Hepatic failure [Not Recovered/Not Resolved]
  - Renal failure [Not Recovered/Not Resolved]

NARRATIVE: CASE EVENT DATE: 20201108
